FAERS Safety Report 11095900 (Version 1)
Quarter: 2015Q2

REPORT INFORMATION
  Report Type: Spontaneous
  Country: AU (occurrence: AU)
  Receive Date: 20150507
  Receipt Date: 20150507
  Transmission Date: 20150821
  Serious: Yes (Other)
  Sender: FDA-Public Use
  Company Number: AU-ASTRAZENECA-2015SE40968

PATIENT
  Age: 83 Year
  Sex: Male

DRUGS (1)
  1. PULMICORT TBH [Suspect]
     Active Substance: BUDESONIDE
     Route: 055
     Dates: start: 2000

REACTIONS (1)
  - Arrhythmia [Recovered/Resolved]

NARRATIVE: CASE EVENT DATE: 2011
